FAERS Safety Report 22896464 (Version 6)
Quarter: 2025Q3

REPORT INFORMATION
  Report Type: Spontaneous
  Country: US (occurrence: US)
  Receive Date: 20230901
  Receipt Date: 20250801
  Transmission Date: 20251020
  Serious: Yes (Hospitalization, Other)
  Sender: PFIZER
  Company Number: US-PFIZER INC-PV202300148379

PATIENT
  Age: 74 Year
  Sex: Female
  Weight: 68.481 kg

DRUGS (8)
  1. IBRANCE [Suspect]
     Active Substance: PALBOCICLIB
     Indication: Breast cancer recurrent
     Dates: start: 202104
  2. IBRANCE [Suspect]
     Active Substance: PALBOCICLIB
     Route: 048
  3. LETROZOLE [Concomitant]
     Active Substance: LETROZOLE
     Dates: start: 202104
  4. VITAMIN B12 [Concomitant]
     Active Substance: CYANOCOBALAMIN
     Dosage: UNK, MONTHLY
  5. ANTIVERT [Concomitant]
     Active Substance: MECLIZINE HYDROCHLORIDE
     Indication: Vertigo
  6. IMODIUM [Concomitant]
     Active Substance: LOPERAMIDE HYDROCHLORIDE
     Indication: Diarrhoea
  7. LASIX [Concomitant]
     Active Substance: FUROSEMIDE
     Indication: Fluid retention
  8. PEPTO-BISMOL [Concomitant]
     Active Substance: BISMUTH SUBSALICYLATE
     Indication: Nausea

REACTIONS (4)
  - Deafness [Unknown]
  - Laryngitis [Recovered/Resolved]
  - Fatigue [Unknown]
  - Brain fog [Unknown]

NARRATIVE: CASE EVENT DATE: 20220101
